FAERS Safety Report 14425322 (Version 1)
Quarter: 2018Q1

REPORT INFORMATION
  Report Type: Spontaneous
  Country: DE (occurrence: DE)
  Receive Date: 20180123
  Receipt Date: 20180123
  Transmission Date: 20180509
  Serious: Yes (Other)
  Sender: FDA-Public Use
  Company Number: DE-TESARO, INC.-DE-2018TSO00328

PATIENT

DRUGS (2)
  1. ZEJULA [Suspect]
     Active Substance: NIRAPARIB
     Dosage: UNK
     Route: 065
  2. ZEJULA [Suspect]
     Active Substance: NIRAPARIB
     Indication: OVARIAN CANCER
     Dosage: 300 MG, UNK
     Route: 065

REACTIONS (3)
  - Overdose [Unknown]
  - Platelet transfusion [Unknown]
  - Adverse reaction [Unknown]
